FAERS Safety Report 17827603 (Version 1)
Quarter: 2020Q2

REPORT INFORMATION
  Report Type: Spontaneous
  Country: SE (occurrence: SE)
  Receive Date: 20200527
  Receipt Date: 20200527
  Transmission Date: 20200714
  Serious: Yes (Hospitalization, Other)
  Sender: FDA-Public Use
  Company Number: SE-LUPIN PHARMACEUTICALS INC.-2020-02469

PATIENT
  Age: 45 Year
  Sex: Male

DRUGS (3)
  1. MELANOTAN II [Suspect]
     Active Substance: INVESTIGATIONAL PRODUCT
     Indication: TANNING
     Dosage: ADMINISTERED TOTAL OF 27 MG
     Route: 058
  2. ESOMEPRAZOLE. [Suspect]
     Active Substance: ESOMEPRAZOLE MAGNESIUM
     Indication: GASTROOESOPHAGEAL REFLUX DISEASE
     Dosage: 20 MILLIGRAM
     Route: 065
  3. DICLOFENAC [Suspect]
     Active Substance: DICLOFENAC
     Indication: ABDOMINAL PAIN
     Dosage: UNK UNK, SINGLE
     Route: 065

REACTIONS (1)
  - Renal infarct [Unknown]
